FAERS Safety Report 8853986 (Version 1)
Quarter: 2012Q4

REPORT INFORMATION
  Report Type: Spontaneous
  Country: US (occurrence: None)
  Receive Date: 20121016
  Receipt Date: 20121016
  Transmission Date: 20130627
  Serious: Yes (Death)
  Sender: FDA-Public Use
  Company Number: 1053087-2009-00001

PATIENT

DRUGS (3)
  1. SODIUM CITRATE [Suspect]
     Indication: APHERESIS
     Route: 042
     Dates: start: 20061103
  2. DICLOFENAC [Concomitant]
  3. ZOLOFT [Concomitant]

REACTIONS (4)
  - Feeling hot [None]
  - Hyperhidrosis [None]
  - Nausea [None]
  - Presyncope [None]
